FAERS Safety Report 25343119 (Version 2)
Quarter: 2025Q3

REPORT INFORMATION
  Report Type: Spontaneous
  Country: CA (occurrence: CA)
  Receive Date: 20250521
  Receipt Date: 20250730
  Transmission Date: 20251020
  Serious: Yes (Death, Life-Threatening, Other)
  Sender: AMGEN
  Company Number: CA-AMGEN-CANSP2025098198

PATIENT

DRUGS (2)
  1. XGEVA [Suspect]
     Active Substance: DENOSUMAB
     Indication: Metastases to bone
     Route: 065
  2. RADIUM RA-223 DICHLORIDE [Concomitant]
     Active Substance: RADIUM RA-223 DICHLORIDE
     Dosage: 50 KBQ/KG (IV INJECTION) EVERY 4 WEEKS FOR 6 CYCLES
     Route: 040

REACTIONS (34)
  - Gastrointestinal perforation [Fatal]
  - Abscess limb [Fatal]
  - Septic shock [Fatal]
  - Anaemia [Fatal]
  - General physical health deterioration [Fatal]
  - Myocardial infarction [Fatal]
  - Cardiac failure congestive [Fatal]
  - Subdural haematoma [Fatal]
  - Metastases to bone [Fatal]
  - Death [Fatal]
  - Spinal cord compression [Unknown]
  - Thrombocytopenia [Unknown]
  - Neutropenia [Unknown]
  - Bone marrow failure [Unknown]
  - Adverse event [Unknown]
  - Leukopenia [Unknown]
  - Sepsis [Unknown]
  - Constipation [Unknown]
  - Diarrhoea [Unknown]
  - Nausea [Unknown]
  - Vomiting [Unknown]
  - Asthenia [Unknown]
  - Fatigue [Unknown]
  - Pain [Unknown]
  - Urinary tract infection [Unknown]
  - Weight decreased [Unknown]
  - Decreased appetite [Unknown]
  - Hypokalaemia [Unknown]
  - Arthralgia [Unknown]
  - Back pain [Unknown]
  - Bone pain [Unknown]
  - Hypertension [Unknown]
  - Gastrointestinal disorder [Unknown]
  - Lymphatic disorder [Unknown]
